FAERS Safety Report 15969097 (Version 10)
Quarter: 2019Q4

REPORT INFORMATION
  Report Type: Spontaneous
  Country: US (occurrence: US)
  Receive Date: 20190215
  Receipt Date: 20191104
  Transmission Date: 20200122
  Serious: Yes (Death, Hospitalization, Other)
  Sender: FDA-Public Use
  Company Number: US-JNJFOC-20190215569

PATIENT
  Age: 76 Year
  Sex: Male

DRUGS (14)
  1. PREDNISONE. [Suspect]
     Active Substance: PREDNISONE
     Indication: MARGINAL ZONE LYMPHOMA
     Route: 048
     Dates: start: 20190118, end: 20190124
  2. VENETOCLAX. [Suspect]
     Active Substance: VENETOCLAX
     Dosage: 50 MG, DAYS 2-5
     Route: 048
     Dates: start: 20190228
  3. OBINUTUZUMAB. [Suspect]
     Active Substance: OBINUTUZUMAB
     Indication: MARGINAL ZONE LYMPHOMA
     Route: 042
     Dates: start: 20190118, end: 20190119
  4. OBINUTUZUMAB. [Suspect]
     Active Substance: OBINUTUZUMAB
     Route: 042
     Dates: start: 20190216
  5. IMBRUVICA [Suspect]
     Active Substance: IBRUTINIB
     Indication: MARGINAL ZONE LYMPHOMA
     Route: 048
     Dates: start: 20190118, end: 20190119
  6. IMBRUVICA [Suspect]
     Active Substance: IBRUTINIB
     Route: 048
     Dates: end: 20190131
  7. LENALIDOMIDE [Suspect]
     Active Substance: LENALIDOMIDE
     Indication: MARGINAL ZONE LYMPHOMA
     Route: 048
     Dates: start: 20190118, end: 20190131
  8. PREDNISONE. [Suspect]
     Active Substance: PREDNISONE
     Route: 048
     Dates: start: 20190221
  9. LENALIDOMIDE [Suspect]
     Active Substance: LENALIDOMIDE
     Route: 048
     Dates: start: 20190228
  10. VENETOCLAX. [Suspect]
     Active Substance: VENETOCLAX
     Dosage: 200 MG, DAYS 6-8
     Route: 048
     Dates: start: 20190123, end: 20190125
  11. VENETOCLAX. [Suspect]
     Active Substance: VENETOCLAX
     Dosage: 800 MG, DAYS 12-14
     Route: 048
     Dates: start: 20190129, end: 20190131
  12. VENETOCLAX. [Suspect]
     Active Substance: VENETOCLAX
     Dosage: 600 MG, DAYS 9-11
     Route: 048
     Dates: start: 20190126, end: 20190128
  13. LENALIDOMIDE [Suspect]
     Active Substance: LENALIDOMIDE
     Route: 048
     Dates: start: 20190226
  14. VENETOCLAX. [Suspect]
     Active Substance: VENETOCLAX
     Indication: MARGINAL ZONE LYMPHOMA
     Dosage: 50 MG, DAYS 2-5
     Route: 048
     Dates: start: 20190119, end: 20190122

REACTIONS (13)
  - Syncope [Recovered/Resolved]
  - Rash maculo-papular [Recovered/Resolved]
  - Neutrophil count abnormal [Unknown]
  - Platelet count abnormal [Unknown]
  - Atelectasis [Unknown]
  - Fatigue [Unknown]
  - White blood cell count abnormal [Unknown]
  - Atrioventricular block [Recovered/Resolved]
  - Pyrexia [Recovered/Resolved]
  - Hypotension [Recovered/Resolved]
  - Atrial flutter [Recovered/Resolved]
  - Disease progression [Fatal]
  - Chills [Unknown]

NARRATIVE: CASE EVENT DATE: 20190128
